FAERS Safety Report 11994852 (Version 2)
Quarter: 2016Q1

REPORT INFORMATION
  Report Type: Report from Study
  Country: CA (occurrence: CA)
  Receive Date: 20160203
  Receipt Date: 20160208
  Transmission Date: 20160526
  Serious: Yes (Life-Threatening, Hospitalization)
  Sender: FDA-Public Use
  Company Number: CA-JNJFOC-20160117968

PATIENT
  Age: 48 Year
  Sex: Male
  Weight: 99 kg

DRUGS (3)
  1. NAPROSYN [Concomitant]
     Active Substance: NAPROXEN
     Route: 065
  2. USTEKINUMAB [Suspect]
     Active Substance: USTEKINUMAB
     Indication: PSORIASIS
     Route: 058
     Dates: start: 200905, end: 20100511
  3. METHOTREXATE [Suspect]
     Active Substance: METHOTREXATE
     Indication: PRODUCT USED FOR UNKNOWN INDICATION
     Route: 065

REACTIONS (4)
  - Drug-induced liver injury [Recovered/Resolved]
  - Coronary artery disease [Recovered/Resolved with Sequelae]
  - Myocardial infarction [Recovered/Resolved]
  - Mediastinitis [Recovered/Resolved]

NARRATIVE: CASE EVENT DATE: 20151201
